FAERS Safety Report 20595244 (Version 1)
Quarter: 2022Q1

REPORT INFORMATION
  Report Type: Spontaneous
  Country: JP (occurrence: JP)
  Receive Date: 20220315
  Receipt Date: 20220315
  Transmission Date: 20220424
  Serious: Yes (Hospitalization, Other)
  Sender: FDA-Public Use
  Company Number: JP-ASTELLAS-2020JP012647

PATIENT
  Age: 50 Year
  Sex: Male
  Weight: 61 kg

DRUGS (12)
  1. PROGRAF [Suspect]
     Active Substance: TACROLIMUS
     Indication: Colitis ulcerative
     Route: 048
     Dates: start: 20200817, end: 20200820
  2. PROGRAF [Suspect]
     Active Substance: TACROLIMUS
     Route: 048
     Dates: start: 20200821, end: 20200823
  3. PROGRAF [Suspect]
     Active Substance: TACROLIMUS
     Route: 048
     Dates: start: 20200824, end: 20200826
  4. PROGRAF [Suspect]
     Active Substance: TACROLIMUS
     Dosage: 2 MG/DAY, UNKNOWN FREQ.
     Route: 048
     Dates: start: 20200827
  5. PROGRAF [Suspect]
     Active Substance: TACROLIMUS
     Dosage: 3 MG/DAY, UNKNOWN FREQ.
     Route: 048
  6. PREDONINE [Concomitant]
     Active Substance: PREDNISOLONE
     Indication: Colitis ulcerative
     Dosage: UNK UNK, UNKNOWN FREQ.
     Route: 041
  7. PREDONINE [Concomitant]
     Active Substance: PREDNISOLONE
     Route: 041
     Dates: start: 20200811
  8. PREDONINE [Concomitant]
     Active Substance: PREDNISOLONE
     Route: 041
  9. SULFAMETHOXAZOLE\TRIMETHOPRIM [Concomitant]
     Active Substance: SULFAMETHOXAZOLE\TRIMETHOPRIM
     Indication: Infection prophylaxis
     Route: 048
     Dates: start: 20200818
  10. RABEPRAZOLE SODIUM [Concomitant]
     Active Substance: RABEPRAZOLE SODIUM
     Indication: Prophylaxis against gastrointestinal ulcer
     Route: 048
     Dates: start: 20200818
  11. Fesin [Concomitant]
     Indication: Iron deficiency anaemia
     Route: 041
     Dates: start: 20200819
  12. SOYBEAN OIL [Concomitant]
     Active Substance: SOYBEAN OIL
     Indication: Gastrointestinal disorder
     Route: 041
     Dates: start: 20200821

REACTIONS (4)
  - Visual impairment [Recovered/Resolved]
  - Headache [Recovered/Resolved]
  - Anaemia [Unknown]
  - Drug level increased [Recovering/Resolving]

NARRATIVE: CASE EVENT DATE: 20200824
